FAERS Safety Report 6577154-4 (Version None)
Quarter: 2010Q1

REPORT INFORMATION
  Report Type: 
  Country: None (occurrence: None)
  Receive Date: 20100210
  Receipt Date: 20100128
  Transmission Date: 20100710
  Serious: Yes (Hospitalization)
  Sender: FDA-Public Use
  Company Number: PHHY2010IT05410

PATIENT
  Sex: Female

DRUGS (3)
  1. SANDIMMUNE [Suspect]
     Indication: APLASTIC ANAEMIA
     Dosage: 350 MG DAILY
     Route: 048
     Dates: start: 20090601, end: 20090615
  2. SANDIMMUNE [Suspect]
     Dosage: 150 MG DAILY
     Route: 048
     Dates: start: 20090622
  3. THYMOGLOBULIN [Suspect]
     Indication: APLASTIC ANAEMIA
     Dosage: 200 MG DAILY
     Route: 042
     Dates: start: 20090530, end: 20090604

REACTIONS (2)
  - FEBRILE NEUTROPENIA [None]
  - PSEUDOMONAS INFECTION [None]
